FAERS Safety Report 4504015-4 (Version None)
Quarter: 2004Q3

REPORT INFORMATION
  Report Type: 
  Country: None (occurrence: None)
  Receive Date: 20040927
  Receipt Date: 20040707
  Transmission Date: 20050211
  Serious: No
  Sender: FDA-Public Use
  Company Number: USA040772005

PATIENT
  Sex: Female

DRUGS (2)
  1. STRATTERA [Suspect]
     Indication: ATTENTION DEFICIT/HYPERACTIVITY DISORDER
     Dosage: 20 MG/1 DAY
     Dates: start: 20040622
  2. PROZAC [Suspect]
     Indication: PANIC ATTACK
     Dosage: 40 MG
     Dates: start: 19990101

REACTIONS (3)
  - DRUG INEFFECTIVE [None]
  - NERVOUSNESS [None]
  - TENSION [None]
